FAERS Safety Report 13853606 (Version 3)
Quarter: 2017Q4

REPORT INFORMATION
  Report Type: Spontaneous
  Country: FR (occurrence: FR)
  Receive Date: 20170810
  Receipt Date: 20171124
  Transmission Date: 20180320
  Serious: Yes (Hospitalization)
  Sender: FDA-Public Use
  Company Number: FR-JNJFOC-20170806002

PATIENT
  Sex: Female

DRUGS (4)
  1. LUTERAN [Concomitant]
     Active Substance: CHLORMADINONE ACETATE
     Route: 065
  2. ESOMEPRAZOLE [Concomitant]
     Active Substance: ESOMEPRAZOLE
     Route: 065
  3. METHOTREXATE. [Concomitant]
     Active Substance: METHOTREXATE
     Route: 065
  4. SIMPONI [Suspect]
     Active Substance: GOLIMUMAB
     Indication: RHEUMATOID ARTHRITIS
     Route: 058
     Dates: start: 201409, end: 201703

REACTIONS (3)
  - IIIrd nerve paralysis [Recovering/Resolving]
  - Vitreous detachment [Unknown]
  - Sjogren^s syndrome [Unknown]
